FAERS Safety Report 12826653 (Version 1)
Quarter: 2016Q4

REPORT INFORMATION
  Report Type: Spontaneous
  Country: US (occurrence: US)
  Receive Date: 20161006
  Receipt Date: 20161006
  Transmission Date: 20170207
  Serious: Yes (Death, Other)
  Sender: FDA-Public Use
  Company Number: US-ASTRAZENECA-2014SE25585

PATIENT
  Age: 779 Month
  Sex: Male
  Weight: 109.8 kg

DRUGS (34)
  1. BYETTA [Suspect]
     Active Substance: EXENATIDE
     Route: 065
  2. ONGLYZA [Concomitant]
     Active Substance: SAXAGLIPTIN HYDROCHLORIDE
     Dosage: 5.0MG UNKNOWN
     Dates: start: 20110324
  3. CLOPIDOGREL [Concomitant]
     Active Substance: CLOPIDOGREL BISULFATE
     Dosage: 75.0MG UNKNOWN
     Dates: start: 20120614
  4. ALPRAZOLAM. [Concomitant]
     Active Substance: ALPRAZOLAM
     Dosage: 0.5MG UNKNOWN
     Dates: start: 20030416
  5. LEVAQUIN [Concomitant]
     Active Substance: LEVOFLOXACIN
     Dosage: 20.0MG UNKNOWN
     Dates: start: 20031218
  6. DIGOXIN. [Concomitant]
     Active Substance: DIGOXIN
     Dosage: 0.125MG UNKNOWN
     Dates: start: 20121011
  7. INDOMETHACIN. [Concomitant]
     Active Substance: INDOMETHACIN
     Route: 048
     Dates: start: 20101104
  8. METFORMIN [Concomitant]
     Active Substance: METFORMIN HYDROCHLORIDE
     Route: 048
     Dates: start: 20050812
  9. PROBENECID. [Concomitant]
     Active Substance: PROBENECID
     Dosage: 500.0MG UNKNOWN
     Dates: start: 20101203
  10. NITROSTAT [Concomitant]
     Active Substance: NITROGLYCERIN
     Dosage: 0.4MG UNKNOWN
     Dates: start: 20120614
  11. POTASSIUM CHLORIDE. [Concomitant]
     Active Substance: POTASSIUM CHLORIDE
     Route: 048
     Dates: start: 20050803
  12. FUROSEMIDE. [Concomitant]
     Active Substance: FUROSEMIDE
     Dosage: 40.0MG UNKNOWN
     Dates: start: 20030812
  13. CARVEDILOL. [Concomitant]
     Active Substance: CARVEDILOL
     Dosage: 6.25MG UNKNOWN
     Dates: start: 20120614
  14. EFFIENT [Concomitant]
     Active Substance: PRASUGREL HYDROCHLORIDE
     Dosage: 10.0MG UNKNOWN
     Dates: start: 20120614
  15. CIALIS [Concomitant]
     Active Substance: TADALAFIL
     Dosage: 10.0MG UNKNOWN
     Dates: start: 20070730
  16. LIPITOR [Concomitant]
     Active Substance: ATORVASTATIN CALCIUM
     Dosage: 80.0MG UNKNOWN
     Dates: start: 20080514
  17. GLIMEPIRIDE. [Concomitant]
     Active Substance: GLIMEPIRIDE
     Dosage: 4.0MG UNKNOWN
     Dates: start: 20110324
  18. CELEBREX [Concomitant]
     Active Substance: CELECOXIB
     Route: 048
     Dates: start: 20030520
  19. GABAPENTIN. [Concomitant]
     Active Substance: GABAPENTIN
     Dosage: 100.0MG UNKNOWN
     Dates: start: 20080415
  20. KETOROLAC [Concomitant]
     Active Substance: KETOROLAC\KETOROLAC TROMETHAMINE
     Dosage: 10.0MG UNKNOWN
     Dates: start: 20030214
  21. CEPHALEXIN. [Concomitant]
     Active Substance: CEPHALEXIN
     Route: 048
     Dates: start: 20060227
  22. BUMETANIDE. [Concomitant]
     Active Substance: BUMETANIDE
     Dosage: 2.0MG UNKNOWN
     Dates: start: 20101220
  23. FLOMAX [Concomitant]
     Active Substance: TAMSULOSIN HYDROCHLORIDE
     Dosage: 0.4MG UNKNOWN
     Dates: start: 20100226
  24. VYTORIN [Concomitant]
     Active Substance: EZETIMIBE\SIMVASTATIN
     Dosage: 10-40 MG, EVERY DAY
     Route: 048
     Dates: start: 20061018
  25. ZOLPIDEM [Concomitant]
     Active Substance: ZOLPIDEM\ZOLPIDEM TARTRATE
     Dosage: 10.0MG UNKNOWN
     Dates: start: 20121011
  26. JANUVIA [Suspect]
     Active Substance: SITAGLIPTIN PHOSPHATE
     Route: 065
  27. JANUVIA [Suspect]
     Active Substance: SITAGLIPTIN PHOSPHATE
     Dosage: 10.0MG UNKNOWN
     Route: 065
     Dates: start: 20080611
  28. AMOXICILLIN. [Concomitant]
     Active Substance: AMOXICILLIN
     Dosage: 500.0MG UNKNOWN
     Dates: start: 20110624
  29. NORVASC [Concomitant]
     Active Substance: AMLODIPINE BESYLATE
     Dosage: 10.0MG UNKNOWN
     Dates: start: 20030123
  30. AVANDAMET [Concomitant]
     Active Substance: METFORMIN HYDROCHLORIDE\ROSIGLITAZONE MALEATE
     Dosage: 4-500 MG, TWICE DAILY
     Route: 048
     Dates: start: 20050902
  31. AVANDIA [Concomitant]
     Active Substance: ROSIGLITAZONE MALEATE
     Route: 048
     Dates: start: 20060329
  32. METOPROLOL TARTRATE. [Concomitant]
     Active Substance: METOPROLOL TARTRATE
     Dosage: 50.0MG UNKNOWN
     Dates: start: 20130221
  33. BYETTA [Suspect]
     Active Substance: EXENATIDE
     Dosage: 10.0UG UNKNOWN
     Route: 065
     Dates: start: 20090325
  34. PENICILLIN VK [Concomitant]
     Active Substance: PENICILLIN V POTASSIUM
     Route: 048
     Dates: start: 20050829

REACTIONS (4)
  - Pancreatic carcinoma metastatic [Fatal]
  - Metastases to liver [Unknown]
  - Metastases to lymph nodes [Unknown]
  - Jaundice [Unknown]

NARRATIVE: CASE EVENT DATE: 201208
